FAERS Safety Report 7972275-3 (Version None)
Quarter: 2011Q4

REPORT INFORMATION
  Report Type: 
  Country: None (occurrence: None)
  Receive Date: 20111213
  Receipt Date: 20111205
  Transmission Date: 20120403
  Serious: Yes (Hospitalization)
  Sender: FDA-Public Use
  Company Number: US-BIOGENIDEC-2011BI044241

PATIENT
  Age: 35 Year
  Sex: Male

DRUGS (1)
  1. TYSABRI [Suspect]
     Indication: MULTIPLE SCLEROSIS
     Route: 042
     Dates: start: 20100809

REACTIONS (6)
  - EYE SWELLING [None]
  - SWELLING FACE [None]
  - GAIT DISTURBANCE [None]
  - ASTHENIA [None]
  - PAIN [None]
  - VISUAL IMPAIRMENT [None]
